FAERS Safety Report 4785294-5 (Version None)
Quarter: 2005Q3

REPORT INFORMATION
  Report Type: 
  Country: None (occurrence: None)
  Receive Date: 20050929
  Receipt Date: 20050914
  Transmission Date: 20060218
  Serious: Yes (Death)
  Sender: FDA-Public Use
  Company Number: 2005-US-00094

PATIENT
  Sex: Male

DRUGS (11)
  1. FUROSEMIDE TABLETS UPS, 20 MG AND 40 MG (FUROSEMIDE) [Suspect]
     Dosage: 80 MG, QD, ORAL
     Route: 048
  2. ALLOPURINOL [Suspect]
     Dosage: 200 MG, QD, ORAL
     Route: 048
  3. PERINDOPRIL [Suspect]
     Dosage: 4 MG QD, ORAL
     Route: 048
  4. TIOTROPIUM BROMIDE [Suspect]
     Dosage: RESPIRATORY (INHALATION)
     Route: 055
  5. DIGOXIN [Suspect]
     Dosage: 250 MCG, QD, ORAL
     Route: 048
  6. PANTOPRAZOLE [Suspect]
     Dosage: 20 MG QD, ORAL
     Route: 048
  7. SIMVASTATIN [Suspect]
     Dosage: 40 MG, QD, ORAL
     Route: 048
  8. WARFARIN SODIUM [Suspect]
     Dosage: ORAL
     Route: 048
  9. BECLOMETHASONE DIPROPIONATE [Suspect]
     Dosage: UNK
     Route: 065
  10. SALBUTAMOL [Suspect]
     Dosage: RESPIRATORY (INHALATION)
     Route: 055
  11. ACETAMINOPHEN [Suspect]
     Dosage: ORAL
     Route: 048

REACTIONS (1)
  - AORTIC DISSECTION [None]
